FAERS Safety Report 14157274 (Version 1)
Quarter: 2017Q4

REPORT INFORMATION
  Report Type: Spontaneous
  Country: US (occurrence: US)
  Receive Date: 20171103
  Receipt Date: 20171103
  Transmission Date: 20180321
  Serious: No
  Sender: FDA-Public Use
  Company Number: US-ASTRAZENECA-2017SE10682

PATIENT
  Sex: Male
  Weight: 68 kg

DRUGS (3)
  1. SYMBICORT [Suspect]
     Active Substance: BUDESONIDE\FORMOTEROL FUMARATE DIHYDRATE
     Indication: ASTHMA
     Dosage: 160/4.5 MICROGRAMS, TWO INHALATIONS NIGHTLY
     Route: 055
  2. SYMBICORT [Suspect]
     Active Substance: BUDESONIDE\FORMOTEROL FUMARATE DIHYDRATE
     Indication: ASTHMA
     Dosage: 160/4.5 MICROGRAMS, 2 PUFFS TWO TIMES A DAY
     Route: 055
  3. PREDNISONE. [Concomitant]
     Active Substance: PREDNISONE
     Indication: ASTHMA
     Dosage: EVERY MORNING
     Route: 048

REACTIONS (9)
  - Condition aggravated [Unknown]
  - Cough [Unknown]
  - Blood glucose increased [Recovered/Resolved]
  - Off label use [Not Recovered/Not Resolved]
  - Dyspnoea [Unknown]
  - Tremor [Unknown]
  - Tension [Unknown]
  - Product use issue [Not Recovered/Not Resolved]
  - Candida infection [Recovered/Resolved]

NARRATIVE: CASE EVENT DATE: 20171023
